FAERS Safety Report 8934067 (Version 2)
Quarter: 2012Q4

REPORT INFORMATION
  Report Type: 
  Country: FR (occurrence: FR)
  Receive Date: 20121129
  Receipt Date: 20121226
  Transmission Date: 20130627
  Serious: Yes (Hospitalization)
  Sender: FDA-Public Use
  Company Number: FR-ELI_LILLY_AND_COMPANY-FR201211005686

PATIENT
  Age: 78 Year
  Sex: Male

DRUGS (1)
  1. FORSTEO [Suspect]
     Indication: OSTEOPOROSIS
     Dosage: 20 ug, qd
     Route: 058
     Dates: start: 20111001

REACTIONS (3)
  - General physical health deterioration [Unknown]
  - Gait disturbance [Unknown]
  - Inappropriate schedule of drug administration [Not Recovered/Not Resolved]
